FAERS Safety Report 4664836-4 (Version None)
Quarter: 2005Q2

REPORT INFORMATION
  Report Type: 
  Country: None (occurrence: None)
  Receive Date: 20050517
  Receipt Date: 20050504
  Transmission Date: 20051028
  Serious: Yes (Hospitalization, Other)
  Sender: FDA-Public Use
  Company Number: HQWYE554005MAY05

PATIENT
  Age: 95 Year
  Sex: Female

DRUGS (7)
  1. PANTOPRAZOLE SODIUM [Suspect]
     Dosage: 20 MG 1X PER 1 DAY, ORAL
     Route: 048
     Dates: start: 20050325, end: 20050331
  2. DICLOFENAC SODIUM [Suspect]
     Indication: BACK PAIN
     Dosage: 50 MG 3X PER 1 DAY, ORAL
     Route: 048
     Dates: start: 20050325, end: 20050331
  3. DICLOFENAC SODIUM [Suspect]
     Indication: SCIATICA
     Dosage: 50 MG 3X PER 1 DAY, ORAL
     Route: 048
     Dates: start: 20050325, end: 20050331
  4. LOPERAMIDE [Concomitant]
  5. DOLIPRANE (PARACETAMOL) [Concomitant]
  6. LORAZEPAM [Concomitant]
  7. COZAAR [Concomitant]

REACTIONS (6)
  - ANAEMIA [None]
  - COLITIS [None]
  - DIARRHOEA [None]
  - DIVERTICULUM [None]
  - HAEMATOCHEZIA [None]
  - HAEMORRHOIDS [None]
